FAERS Safety Report 5365538-1 (Version None)
Quarter: 2007Q2

REPORT INFORMATION
  Report Type: 
  Country: None (occurrence: None)
  Receive Date: 20070621
  Receipt Date: 20070619
  Transmission Date: 20071010
  Serious: Yes (Other)
  Sender: FDA-Public Use
  Company Number: B0431023A

PATIENT
  Age: 44 Year
  Sex: Male

DRUGS (10)
  1. EPIVIR [Suspect]
     Indication: HIV INFECTION
     Dosage: 300MG PER DAY
     Route: 048
     Dates: start: 20060115, end: 20060405
  2. ZIAGEN [Suspect]
     Indication: HIV INFECTION
     Dosage: 300MG TWICE PER DAY
     Route: 048
     Dates: start: 20060115, end: 20060405
  3. STOCRIN [Concomitant]
     Indication: HIV INFECTION
     Route: 048
     Dates: start: 20060115
  4. BAKTAR [Concomitant]
     Route: 048
     Dates: start: 20051217
  5. ZITHROMAC [Concomitant]
     Route: 065
     Dates: start: 20051219
  6. TRUVADA [Concomitant]
     Indication: HIV INFECTION
     Route: 048
     Dates: start: 20060516
  7. PREDONINE [Concomitant]
     Indication: LYMPHOMA
     Dosage: 60MG PER DAY
     Dates: start: 20060506, end: 20060815
  8. ENDOXAN [Concomitant]
     Indication: LYMPHOMA
     Dosage: 750MG PER DAY
     Dates: start: 20060506, end: 20060811
  9. ADRIAMYCIN PFS [Concomitant]
     Indication: LYMPHOMA
     Dosage: 75MG PER DAY
     Route: 042
     Dates: start: 20060506, end: 20060811
  10. ONCOVIN [Concomitant]
     Indication: LYMPHOMA
     Dosage: 2MG PER DAY
     Route: 042
     Dates: start: 20060506, end: 20060811

REACTIONS (3)
  - EPIGASTRIC DISCOMFORT [None]
  - HEPATIC FUNCTION ABNORMAL [None]
  - MALAISE [None]
